APPROVED DRUG PRODUCT: TRANYLCYPROMINE SULFATE
Active Ingredient: TRANYLCYPROMINE SULFATE
Strength: EQ 10MG BASE
Dosage Form/Route: TABLET;ORAL
Application: A040640 | Product #001 | TE Code: AB
Applicant: STRIDES PHARMA INTERNATIONAL AG
Approved: Jun 29, 2006 | RLD: No | RS: No | Type: RX